FAERS Safety Report 4578846-9 (Version None)
Quarter: 2005Q1

REPORT INFORMATION
  Report Type: 
  Country: None (occurrence: None)
  Receive Date: 20050207
  Receipt Date: 20050207
  Transmission Date: 20050727
  Serious: No
  Sender: FDA-Public Use
  Company Number: None

PATIENT
  Sex: Female

DRUGS (1)
  1. CLONAZEPAM [Suspect]
     Indication: ANXIETY
     Dosage: 1 PO 2X DAILY
     Route: 048

REACTIONS (2)
  - PARADOXICAL DRUG REACTION [None]
  - PHARMACEUTICAL PRODUCT COMPLAINT [None]
